FAERS Safety Report 7862839-X (Version None)
Quarter: 2011Q4

REPORT INFORMATION
  Report Type: 
  Country: None (occurrence: None)
  Receive Date: 20111027
  Receipt Date: 20101115
  Transmission Date: 20120403
  Serious: No
  Sender: FDA-Public Use
  Company Number: US-AMGEN-USASP2010005409

PATIENT
  Age: 57 Year
  Sex: Female

DRUGS (4)
  1. ENBREL [Suspect]
     Indication: PSORIATIC ARTHROPATHY
     Dosage: 50 MG, QWK
     Dates: start: 20080508
  2. METHOTREXATE [Concomitant]
     Dates: start: 20060901
  3. ENBREL [Suspect]
     Indication: PSORIASIS
  4. ANTIBIOTIC                         /00011701/ [Suspect]
     Indication: LOCALISED INFECTION

REACTIONS (6)
  - MUSCULOSKELETAL DISCOMFORT [None]
  - LOCALISED INFECTION [None]
  - PSORIATIC ARTHROPATHY [None]
  - SINUSITIS [None]
  - INJECTION SITE ERYTHEMA [None]
  - LIMB INJURY [None]
